FAERS Safety Report 8263471-9 (Version None)
Quarter: 2012Q2

REPORT INFORMATION
  Report Type: 
  Country: None (occurrence: None)
  Receive Date: 20120405
  Receipt Date: 20120326
  Transmission Date: 20120825
  Serious: Yes (Disabling, Other)
  Sender: FDA-Public Use
  Company Number: US-PURDUE-USA-2012-0084854

PATIENT
  Age: 51 Year
  Sex: Female

DRUGS (1)
  1. OXYCONTIN [Suspect]
     Indication: BACK PAIN
     Dosage: UNK
     Dates: start: 19970101

REACTIONS (4)
  - TOOTH LOSS [None]
  - TOOTH DISCOLOURATION [None]
  - CHRONIC OBSTRUCTIVE PULMONARY DISEASE [None]
  - JOINT INJURY [None]
